FAERS Safety Report 5277205-3 (Version None)
Quarter: 2007Q1

REPORT INFORMATION
  Report Type: 
  Country: None (occurrence: None)
  Receive Date: 20061213
  Receipt Date: 20041108
  Transmission Date: 20070707
  Serious: Yes (Other)
  Sender: FDA-Public Use
  Company Number: 2004UW23048

PATIENT
  Sex: Female

DRUGS (7)
  1. SEROQUEL [Suspect]
     Indication: BIPOLAR DISORDER
     Dosage: 200 MG HS PO
     Route: 048
  2. SEROQUEL [Suspect]
     Indication: BIPOLAR DISORDER
     Dosage: 800 MG ONCE PO
     Route: 048
     Dates: start: 20041030, end: 20041030
  3. RISPERDAL [Concomitant]
  4. PROZAC [Concomitant]
  5. LAMICTAL [Concomitant]
  6. ANTABUSE [Concomitant]
  7. PEMOLINE [Concomitant]

REACTIONS (4)
  - EXTRAPYRAMIDAL DISORDER [None]
  - INCORRECT DOSE ADMINISTERED [None]
  - NIGHTMARE [None]
  - SEDATION [None]
